FAERS Safety Report 23032419 (Version 1)
Quarter: 2023Q4

REPORT INFORMATION
  Report Type: Spontaneous
  Country: CA (occurrence: CA)
  Receive Date: 20231005
  Receipt Date: 20231005
  Transmission Date: 20240110
  Serious: Yes (Other)
  Sender: FDA-Public Use
  Company Number: CA-SANDOZ-SDZ2023CA037641

PATIENT
  Age: 50 Year
  Sex: Female

DRUGS (1)
  1. HYRIMOZ [Suspect]
     Active Substance: ADALIMUMAB-ADAZ
     Indication: Ankylosing spondylitis
     Dosage: 40 MG(SOLUTION SUBCUTANEOUS)
     Route: 058

REACTIONS (5)
  - Axillary web syndrome [Unknown]
  - Erythema nodosum [Unknown]
  - Breast cancer [Unknown]
  - Pain [Unknown]
  - Drug ineffective [Unknown]
